FAERS Safety Report 20071882 (Version 1)
Quarter: 2021Q4

REPORT INFORMATION
  Report Type: Report from Study
  Country: US (occurrence: US)
  Receive Date: 20211116
  Receipt Date: 20211116
  Transmission Date: 20220303
  Serious: No
  Sender: FDA-Public Use
  Company Number: US-INCYTE CORPORATION-2021IN009450

PATIENT

DRUGS (1)
  1. JAKAFI [Suspect]
     Active Substance: RUXOLITINIB
     Indication: Polycythaemia vera
     Dosage: 5MG TAB 2 IN AM 3 IN PM
     Route: 048
     Dates: start: 20170119

REACTIONS (3)
  - Fall [Recovering/Resolving]
  - Haematoma [Recovering/Resolving]
  - Rotator cuff syndrome [Recovering/Resolving]
